FAERS Safety Report 7215605-2 (Version None)
Quarter: 2011Q1

REPORT INFORMATION
  Report Type: 
  Country: None (occurrence: None)
  Receive Date: 20110104
  Receipt Date: 20110104
  Transmission Date: 20110831
  Serious: Yes (Other)
  Sender: FDA-Public Use
  Company Number: None

PATIENT
  Sex: Female
  Weight: 63.5036 kg

DRUGS (1)
  1. CRESTOR [Suspect]
     Indication: BLOOD CHOLESTEROL INCREASED
     Dosage: ONE PER DAY PO
     Route: 048
     Dates: start: 20100515, end: 20101027

REACTIONS (7)
  - FATIGUE [None]
  - ARTHRALGIA [None]
  - FLUSHING [None]
  - PALPITATIONS [None]
  - TREMOR [None]
  - MALAISE [None]
  - NEURALGIA [None]
